FAERS Safety Report 9936065 (Version 1)
Quarter: 2014Q1

REPORT INFORMATION
  Report Type: Spontaneous
  Country: US (occurrence: US)
  Receive Date: 20140228
  Receipt Date: 20140228
  Transmission Date: 20141002
  Serious: No
  Sender: FDA-Public Use
  Company Number: US-AMGEN-USASP2013079726

PATIENT
  Age: 63 Year
  Sex: Female

DRUGS (13)
  1. ENBREL [Suspect]
     Indication: PRODUCT USED FOR UNKNOWN INDICATION
     Dosage: 50 MG, QWK
     Route: 058
  2. VERAPAMIL [Concomitant]
     Dosage: 120 MG, UNK
  3. RELPAX [Concomitant]
     Dosage: 20 MG, UNK
  4. COQ 10 [Concomitant]
     Dosage: 100 MG, UNK
  5. VITAMIN D                          /00107901/ [Concomitant]
     Dosage: 1000 UNIT, UNK
  6. TEA, GREEN [Concomitant]
     Dosage: 250 MG, UNK
  7. NORCO [Concomitant]
     Dosage: 5-325 MG, UNK
  8. METHOTREXATE [Concomitant]
     Dosage: 2.5 MG, UNK
  9. LIPITOR [Concomitant]
     Dosage: 10 MG, UNK
  10. ASPIRIN [Concomitant]
     Dosage: 81 MG, UNK
  11. FOLIC ACID [Concomitant]
     Dosage: 5 MG, UNK
  12. DIAZEPAM [Concomitant]
     Dosage: 10 MG, UNK
  13. LEVOTHYROXIN [Concomitant]
     Dosage: 25 MUG, UNK

REACTIONS (1)
  - Headache [Unknown]
